FAERS Safety Report 5276398-1 (Version None)
Quarter: 2007Q1

REPORT INFORMATION
  Report Type: 
  Country: None (occurrence: None)
  Receive Date: 20061213
  Receipt Date: 20040204
  Transmission Date: 20070707
  Serious: No
  Sender: FDA-Public Use
  Company Number: 2004UW00446

PATIENT
  Age: 22 Year
  Sex: Female
  Weight: 113.8529 kg

DRUGS (5)
  1. SEROQUEL [Suspect]
     Indication: DEPRESSION
     Dosage: 200 MG HS PO
     Route: 048
     Dates: start: 20031001
  2. SEROQUEL [Suspect]
     Indication: ANXIETY
  3. NEURONTIN [Concomitant]
  4. KEPPRA [Concomitant]
  5. EFFEXOR [Concomitant]

REACTIONS (1)
  - TARDIVE DYSKINESIA [None]
